FAERS Safety Report 18443187 (Version 31)
Quarter: 2022Q2

REPORT INFORMATION
  Report Type: Report from Study
  Country: MX (occurrence: MX)
  Receive Date: 20201029
  Receipt Date: 20220618
  Transmission Date: 20220720
  Serious: Yes (Hospitalization, Other)
  Sender: FDA-Public Use
  Company Number: MX-SHIRE-MX202008603

PATIENT
  Sex: Male
  Weight: 39 kg

DRUGS (11)
  1. IDURSULFASE [Suspect]
     Active Substance: IDURSULFASE
     Indication: Mucopolysaccharidosis II
     Dosage: 18 GRAM, 1/WEEK
     Route: 042
     Dates: start: 2013
  2. IDURSULFASE [Suspect]
     Active Substance: IDURSULFASE
     Dosage: 3 DOSAGE FORM, 1/WEEK
     Route: 042
     Dates: start: 20200301
  3. IDURSULFASE [Suspect]
     Active Substance: IDURSULFASE
     Dosage: 3 DOSAGE FORM, 1/WEEK
     Route: 042
     Dates: start: 20200405
  4. IDURSULFASE [Suspect]
     Active Substance: IDURSULFASE
     Dosage: 3 DOSAGE FORM, 1/WEEK
     Route: 042
  5. DIPHENHYDRAMINE [Concomitant]
     Active Substance: DIPHENHYDRAMINE
     Indication: Premedication
     Dosage: 5 MILLILITER, 1X/WEEK
     Route: 048
     Dates: start: 2013
  6. ACETAMINOPHEN [Concomitant]
     Active Substance: ACETAMINOPHEN
     Indication: Premedication
     Dosage: 0.5 MILLILITER, 1/WEEK
     Route: 048
     Dates: start: 2013
  7. ALBUTEROL [Concomitant]
     Active Substance: ALBUTEROL
     Indication: Productive cough
     Route: 065
  8. ALBUTEROL [Concomitant]
     Active Substance: ALBUTEROL
     Indication: Dyspnoea
  9. OXCARBAZEPINE [Concomitant]
     Active Substance: OXCARBAZEPINE
     Indication: Seizure
     Dosage: 500 MILLIGRAM, Q12H
     Route: 048
     Dates: start: 2017
  10. OXCARBAZEPINE [Concomitant]
     Active Substance: OXCARBAZEPINE
     Indication: Mucopolysaccharidosis II
  11. LEVETIRACETAM [Concomitant]
     Active Substance: LEVETIRACETAM
     Indication: Mucopolysaccharidosis II
     Dosage: 600 MILLIGRAM, BID
     Route: 048
     Dates: start: 2017

REACTIONS (25)
  - Seizure [Recovered/Resolved]
  - Sinusitis [Recovered/Resolved]
  - Abscess limb [Recovered/Resolved]
  - Haemorrhage [Unknown]
  - Hospitalisation [Recovered/Resolved]
  - Spinal cord lipoma [Not Recovered/Not Resolved]
  - Post procedural complication [Not Recovered/Not Resolved]
  - Limb injury [Not Recovered/Not Resolved]
  - Central venous catheterisation [Unknown]
  - Illness [Recovered/Resolved]
  - Malaise [Recovered/Resolved]
  - Productive cough [Not Recovered/Not Resolved]
  - Cough [Not Recovered/Not Resolved]
  - Pyrexia [Recovered/Resolved]
  - Dyspnoea [Not Recovered/Not Resolved]
  - Restlessness [Not Recovered/Not Resolved]
  - Procedural pain [Not Recovered/Not Resolved]
  - Mobility decreased [Not Recovered/Not Resolved]
  - Insomnia [Not Recovered/Not Resolved]
  - Therapy interrupted [Recovering/Resolving]
  - Product use in unapproved therapeutic environment [Unknown]
  - Inappropriate schedule of product administration [Unknown]
  - Product dose omission issue [Recovering/Resolving]
  - Product availability issue [Unknown]
  - Respiratory disorder [Recovering/Resolving]

NARRATIVE: CASE EVENT DATE: 20180101
